FAERS Safety Report 10607175 (Version 1)
Quarter: 2014Q4

REPORT INFORMATION
  Report Type: Spontaneous
  Country: US (occurrence: None)
  Receive Date: 20141124
  Receipt Date: 20141124
  Transmission Date: 20150529
  Serious: Yes (Hospitalization)
  Sender: FDA-Public Use
  Company Number: None

PATIENT
  Age: 79 Year
  Sex: Female
  Weight: 53.2 kg

DRUGS (18)
  1. ETODOLAC. [Suspect]
     Active Substance: ETODOLAC
     Indication: OSTEOARTHRITIS
     Dosage: CHRONIC 400 MG QAM QPM PRN
     Route: 048
  2. ULTRACET [Concomitant]
     Active Substance: ACETAMINOPHEN\TRAMADOL HYDROCHLORIDE
  3. SINGULAIR [Concomitant]
     Active Substance: MONTELUKAST SODIUM
  4. PREDNISONE. [Concomitant]
     Active Substance: PREDNISONE
  5. SIMVASTATIN. [Concomitant]
     Active Substance: SIMVASTATIN
  6. TRUSOPT [Concomitant]
     Active Substance: DORZOLAMIDE HYDROCHLORIDE
  7. HCTZ/TRIAMTERENE [Concomitant]
  8. MVI [Concomitant]
     Active Substance: VITAMINS
  9. SKELAXIN [Concomitant]
     Active Substance: METAXALONE
  10. ASA [Suspect]
     Active Substance: ASPIRIN
     Indication: PEPTIC ULCER
     Route: 048
  11. ALBUTEROL. [Concomitant]
     Active Substance: ALBUTEROL
  12. METOPROLOL [Concomitant]
     Active Substance: METOPROLOL
  13. MECLIZINE [Concomitant]
     Active Substance: MECLIZINE\MECLIZINE HYDROCHLORIDE
  14. PLAQUENIL [Concomitant]
     Active Substance: HYDROXYCHLOROQUINE SULFATE
  15. MAALOX ANTACID [Concomitant]
     Active Substance: ALUMINUM HYDROXIDE\DIMETHICONE\MAGNESIUM HYDROXIDE
  16. OMEPRAZOLE. [Concomitant]
     Active Substance: OMEPRAZOLE
  17. ADVAIR HFA [Concomitant]
     Active Substance: FLUTICASONE PROPIONATE\SALMETEROL XINAFOATE
  18. XALATAN [Concomitant]
     Active Substance: LATANOPROST

REACTIONS (5)
  - Gastric ulcer [None]
  - Large intestinal ulcer [None]
  - Haemorrhagic anaemia [None]
  - Chronic gastritis [None]
  - Anaemia of chronic disease [None]

NARRATIVE: CASE EVENT DATE: 20140425
